FAERS Safety Report 4537423-6 (Version None)
Quarter: 2004Q4

REPORT INFORMATION
  Report Type: 
  Country: None (occurrence: None)
  Receive Date: 20041216
  Receipt Date: 20040730
  Transmission Date: 20050328
  Serious: Yes (Other)
  Sender: FDA-Public Use
  Company Number: HQWYE702102AUG04

PATIENT
  Age: 43 Year
  Sex: Female
  Weight: 90.8 kg

DRUGS (8)
  1. EFFEXOR XR [Suspect]
     Indication: DEPRESSION
     Dosage: 37.5 MG; 150 MG 1X PER 1 DAY
     Dates: end: 20020201
  2. EFFEXOR XR [Suspect]
     Indication: DEPRESSION
     Dosage: 37.5 MG; 150 MG 1X PER 1 DAY
     Dates: start: 20020201
  3. WELLBUTRIN [Concomitant]
  4. SYNTHROID [Concomitant]
  5. CLONIDINE [Concomitant]
  6. SONATA [Concomitant]
  7. UNSPECIFIED THYROID MEDICATION (UNSPECIFIED THYROID MEDICATION) [Concomitant]
  8. DARVOCET-N (DEXTROPROPOXYPHENE/PARACETAMOL) [Concomitant]

REACTIONS (11)
  - ACNE [None]
  - BLOOD PROLACTIN INCREASED [None]
  - BREAST CYST [None]
  - BREAST ENGORGEMENT [None]
  - BREAST PAIN [None]
  - CRYING [None]
  - DRUG WITHDRAWAL SYNDROME [None]
  - GALACTORRHOEA [None]
  - HAIR TEXTURE ABNORMAL [None]
  - HYPOTHYROIDISM [None]
  - MEMORY IMPAIRMENT [None]
